FAERS Safety Report 10185030 (Version 1)
Quarter: 2014Q2

REPORT INFORMATION
  Report Type: Spontaneous
  Country: US (occurrence: None)
  Receive Date: 20140519
  Receipt Date: 20140519
  Transmission Date: 20141212
  Serious: Yes (Hospitalization)
  Sender: FDA-Public Use
  Company Number: HYP201404-000025

PATIENT
  Age: 2 Day
  Sex: Female
  Weight: 11.8 kg

DRUGS (3)
  1. RAVICTI [Suspect]
     Indication: AMINO ACID METABOLISM DISORDER
     Route: 048
     Dates: start: 201310
  2. CITRULLINE [Concomitant]
  3. CARNITINE [Concomitant]

REACTIONS (9)
  - Hyperammonaemic crisis [None]
  - Hyponatraemia [None]
  - Hypophagia [None]
  - Dehydration [None]
  - Cough [None]
  - Weight decreased [None]
  - Nasal congestion [None]
  - Respiratory tract infection [None]
  - Electrolyte imbalance [None]
